FAERS Safety Report 22388497 (Version 6)
Quarter: 2023Q4

REPORT INFORMATION
  Report Type: Spontaneous
  Country: US (occurrence: US)
  Receive Date: 20230531
  Receipt Date: 20231004
  Transmission Date: 20240110
  Serious: No
  Sender: FDA-Public Use
  Company Number: US-PFIZER INC-PV202300093565

PATIENT
  Age: 64 Year
  Sex: Male

DRUGS (1)
  1. GENOTROPIN [Suspect]
     Active Substance: SOMATROPIN
     Indication: Marfan^s syndrome
     Dosage: 1 MG, 2X/DAY
     Route: 058

REACTIONS (2)
  - Wrong technique in device usage process [Unknown]
  - Off label use [Unknown]
